FAERS Safety Report 4709554-9 (Version None)
Quarter: 2005Q3

REPORT INFORMATION
  Report Type: 
  Country: None (occurrence: None)
  Receive Date: 20050707
  Receipt Date: 20050617
  Transmission Date: 20060218
  Serious: Yes (Other)
  Sender: FDA-Public Use
  Company Number: USA0506100765

PATIENT
  Age: 45 Year
  Sex: Male

DRUGS (1)
  1. ALIMTA [Suspect]
     Indication: PANCREATIC CARCINOMA

REACTIONS (1)
  - PANCYTOPENIA [None]
